FAERS Safety Report 22259524 (Version 2)
Quarter: 2023Q2

REPORT INFORMATION
  Report Type: Spontaneous
  Country: AU (occurrence: AU)
  Receive Date: 20230427
  Receipt Date: 20230510
  Transmission Date: 20230721
  Serious: Yes (Other)
  Sender: FDA-Public Use
  Company Number: AU-MYLANLABS-2023M1044005

PATIENT
  Sex: Female

DRUGS (4)
  1. ZOLOFT [Suspect]
     Active Substance: SERTRALINE HYDROCHLORIDE
     Indication: Post-traumatic stress disorder
     Dosage: 0.25 MILLIGRAM
     Route: 065
     Dates: start: 202205
  2. ZOLOFT [Suspect]
     Active Substance: SERTRALINE HYDROCHLORIDE
     Indication: Generalised anxiety disorder
     Dosage: 0.50 MILLIGRAM
     Route: 065
  3. ZOLOFT [Suspect]
     Active Substance: SERTRALINE HYDROCHLORIDE
     Dosage: 1 MILLIGRAM
     Route: 065
  4. ZOLOFT [Suspect]
     Active Substance: SERTRALINE HYDROCHLORIDE
     Dosage: 2 MILLIGRAM
     Route: 065
     Dates: end: 202304

REACTIONS (14)
  - Syncope [Unknown]
  - Loss of consciousness [Unknown]
  - Depersonalisation/derealisation disorder [Not Recovered/Not Resolved]
  - Amnesia [Recovered/Resolved]
  - Disturbance in attention [Recovered/Resolved]
  - Suicidal ideation [Recovered/Resolved]
  - Dizziness [Unknown]
  - Electric shock sensation [Not Recovered/Not Resolved]
  - Nausea [Unknown]
  - Adverse event [Unknown]
  - Nightmare [Unknown]
  - Slow speech [Recovered/Resolved]
  - Headache [Not Recovered/Not Resolved]
  - Anger [Not Recovered/Not Resolved]
